FAERS Safety Report 5777614-X (Version None)
Quarter: 2008Q2

REPORT INFORMATION
  Report Type: 
  Country: None (occurrence: None)
  Receive Date: 20080618
  Receipt Date: 20080613
  Transmission Date: 20081010
  Serious: Yes (Death)
  Sender: FDA-Public Use
  Company Number: DE-BAYER-200820381GPV

PATIENT
  Age: 77 Year
  Sex: Male
  Weight: 62 kg

DRUGS (2)
  1. SORAFENIB [Suspect]
     Indication: RENAL CELL CARCINOMA
     Route: 048
     Dates: start: 20080526, end: 20080528
  2. GEMCITABINE [Suspect]
     Indication: BRONCHIAL CARCINOMA
     Route: 042
     Dates: start: 20080527, end: 20080527

REACTIONS (1)
  - PULMONARY OEDEMA [None]
